FAERS Safety Report 8579971-8 (Version None)
Quarter: 2012Q3

REPORT INFORMATION
  Report Type: 
  Country: None (occurrence: None)
  Receive Date: 20120808
  Receipt Date: 20120806
  Transmission Date: 20120928
  Serious: No
  Sender: FDA-Public Use
  Company Number: US-PFIZER INC-2012192124

PATIENT
  Sex: Female

DRUGS (2)
  1. CHANTIX [Suspect]
     Indication: SMOKING CESSATION THERAPY
     Dosage: UNK
     Dates: start: 20120701, end: 20120701
  2. CHANTIX [Suspect]
     Dosage: UNK
     Dates: start: 20120701

REACTIONS (4)
  - SKIN EXFOLIATION [None]
  - MOOD ALTERED [None]
  - ABDOMINAL DISCOMFORT [None]
  - INSOMNIA [None]
